FAERS Safety Report 6985102-8 (Version None)
Quarter: 2010Q3

REPORT INFORMATION
  Report Type: 
  Country: None (occurrence: None)
  Receive Date: 20100915
  Receipt Date: 20100909
  Transmission Date: 20110219
  Serious: Yes (Life-Threatening, Hospitalization)
  Sender: FDA-Public Use
  Company Number: PHHY2009DE06829

PATIENT
  Age: 69 Year
  Sex: Female
  Weight: 90 kg

DRUGS (9)
  1. DICLOFENAC [Suspect]
     Indication: SCIATICA
     Dosage: 75MG PER DAY
     Route: 048
     Dates: start: 20070801, end: 20070801
  2. STALEVO 100 [Concomitant]
     Indication: PARKINSON'S DISEASE
     Dosage: UNK
     Route: 048
     Dates: start: 20000101
  3. PRAMIPEXOLE DIHYDROCHLORIDE [Concomitant]
     Indication: PARKINSON'S DISEASE
     Dosage: 0.7MG
     Route: 048
     Dates: start: 20070601
  4. REMERGIL [Concomitant]
     Indication: PARKINSON'S DISEASE
     Dosage: UNK
     Route: 048
     Dates: start: 20070601
  5. PK-MERZ [Concomitant]
     Indication: PARKINSON'S DISEASE
     Dosage: 150 MG, BID
     Route: 048
     Dates: start: 20070601
  6. MADOPAR [Concomitant]
     Indication: PARKINSON'S DISEASE
     Dosage: UNK
     Route: 048
     Dates: start: 20070601
  7. DELIX PLUS [Concomitant]
     Indication: HYPERTENSION
     Dosage: 1 TABLET PER DAY
     Route: 048
     Dates: start: 20070601
  8. BISOPROLOL [Concomitant]
     Indication: HYPERTENSION
     Dosage: UNK
     Dates: start: 20070601
  9. ALDACTONE [Concomitant]
     Indication: HYPERTENSION
     Dosage: 50MG
     Route: 048
     Dates: start: 20080101

REACTIONS (16)
  - ABDOMINAL DISTENSION [None]
  - ABDOMINAL PAIN UPPER [None]
  - BLOOD CREATININE INCREASED [None]
  - BLOOD UREA INCREASED [None]
  - C-REACTIVE PROTEIN INCREASED [None]
  - DUODENAL ULCER PERFORATION [None]
  - DUODENAL ULCER REPAIR [None]
  - GASTRIC PERFORATION [None]
  - HAEMATOCRIT DECREASED [None]
  - HAEMOGLOBIN DECREASED [None]
  - IMPAIRED HEALING [None]
  - LAPAROTOMY [None]
  - POST PROCEDURAL COMPLICATION [None]
  - RED BLOOD CELL COUNT DECREASED [None]
  - REFLUX OESOPHAGITIS [None]
  - VOMITING [None]
